FAERS Safety Report 9703037 (Version 1)
Quarter: 2013Q4

REPORT INFORMATION
  Report Type: Spontaneous
  Country: AU (occurrence: AU)
  Receive Date: 20131122
  Receipt Date: 20131122
  Transmission Date: 20140711
  Serious: No
  Sender: FDA-Public Use
  Company Number: AU-JNJFOC-20131107206

PATIENT
  Sex: Female

DRUGS (1)
  1. DUROGESIC [Suspect]
     Indication: PAIN
     Route: 062

REACTIONS (4)
  - Wrong technique in drug usage process [Unknown]
  - Breakthrough pain [Not Recovered/Not Resolved]
  - Discomfort [Not Recovered/Not Resolved]
  - Product quality issue [Unknown]
